FAERS Safety Report 16406584 (Version 5)
Quarter: 2019Q3

REPORT INFORMATION
  Report Type: Spontaneous
  Country: US (occurrence: US)
  Receive Date: 20190607
  Receipt Date: 20190902
  Transmission Date: 20191004
  Serious: Yes (Death, Hospitalization)
  Sender: FDA-Public Use
  Company Number: US-PFIZER INC-2019125525

PATIENT
  Age: 79 Year
  Sex: Male
  Weight: 56.25 kg

DRUGS (5)
  1. TIKOSYN [Suspect]
     Active Substance: DOFETILIDE
     Indication: ARRHYTHMIA
     Dosage: 250 UG, 2X/DAY
     Route: 048
     Dates: start: 20190327
  2. TIKOSYN [Suspect]
     Active Substance: DOFETILIDE
     Indication: ATRIAL FIBRILLATION
     Dosage: 250 MG, 2X/DAY
     Route: 048
     Dates: start: 20190325
  3. XELJANZ XR [Concomitant]
     Active Substance: TOFACITINIB CITRATE
     Indication: ARTHRITIS
     Dosage: 11 MG, UNK
  4. TIKOSYN [Suspect]
     Active Substance: DOFETILIDE
     Indication: VENTRICULAR TACHYCARDIA
     Dosage: 500 UG, 2X/DAY
     Route: 048
     Dates: start: 20190314
  5. TIKOSYN [Suspect]
     Active Substance: DOFETILIDE
     Dosage: 0.25 MG, UNK
     Route: 048

REACTIONS (11)
  - Hepatic failure [Unknown]
  - Abscess [Recovering/Resolving]
  - Pneumonia [Unknown]
  - Off label use [Unknown]
  - Weight decreased [Unknown]
  - Death [Fatal]
  - Staphylococcal infection [Recovering/Resolving]
  - Malaise [Unknown]
  - Hypotension [Unknown]
  - Product use in unapproved indication [Unknown]
  - Renal failure [Unknown]

NARRATIVE: CASE EVENT DATE: 20190314
